FAERS Safety Report 8390358-3 (Version None)
Quarter: 2012Q2

REPORT INFORMATION
  Report Type: 
  Country: None (occurrence: None)
  Receive Date: 20120529
  Receipt Date: 20120515
  Transmission Date: 20120825
  Serious: Yes (Hospitalization)
  Sender: FDA-Public Use
  Company Number: US-JNJFOC-20120514087

PATIENT
  Sex: Male
  Weight: 66.4 kg

DRUGS (1)
  1. REMICADE [Suspect]
     Indication: INFLAMMATORY BOWEL DISEASE
     Route: 042
     Dates: start: 20050908

REACTIONS (2)
  - LACERATION [None]
  - OEDEMA PERIPHERAL [None]
